FAERS Safety Report 21279391 (Version 1)
Quarter: 2022Q3

REPORT INFORMATION
  Report Type: Spontaneous
  Country: FR (occurrence: FR)
  Receive Date: 20220901
  Receipt Date: 20220901
  Transmission Date: 20221027
  Serious: Yes (Life-Threatening, Hospitalization)
  Sender: FDA-Public Use
  Company Number: None

PATIENT
  Age: 84 Year
  Sex: Female
  Weight: 84 kg

DRUGS (7)
  1. METFORMIN [Suspect]
     Active Substance: METFORMIN HYDROCHLORIDE
     Indication: Diabetes mellitus
     Dosage: UNIT DOSE : 500 MG  , FREQUENCY TIME : 8 HOUR , THERAPY START DATE :NASK
     Dates: end: 20220727
  2. BISOPROLOL FUMARATE [Interacting]
     Active Substance: BISOPROLOL FUMARATE
     Indication: Hypertension
     Dosage: BISOPROLOL (FUMARATE DE) , UNIT DOSE : 5 MG  , FREQUENCY TIME : 1 DAY , THERAPY START DATE :NASK
     Dates: end: 20220727
  3. FUROSEMIDE [Interacting]
     Active Substance: FUROSEMIDE
     Indication: Hypertension
     Dosage: UNIT DOSE : 40 MG   , FREQUENCY TIME : 1 DAY , THERAPY START DATE :NASK
     Dates: end: 20220727
  4. LERCANIDIPINE HYDROCHLORIDE [Interacting]
     Active Substance: LERCANIDIPINE HYDROCHLORIDE
     Indication: Hypertension
     Dosage: LERCANIDIPINE (CHLORHYDRATE DE) , UNIT DOSE : 20 MG   , FREQUENCY TIME : 1 DAY , THERAPY START DATE
     Dates: end: 20220727
  5. HYDROCHLOROTHIAZIDE\IRBESARTAN [Interacting]
     Active Substance: HYDROCHLOROTHIAZIDE\IRBESARTAN
     Indication: Hypertension
     Dosage: 300/25 , UNIT DOSE : 300 MG  , FREQUENCY TIME : 1 DAY , THERAPY START DATE :NASK
     Dates: end: 20220727
  6. ATORVASTATIN [Concomitant]
     Active Substance: ATORVASTATIN
     Indication: Dyslipidaemia
     Dosage: UNIT DOSE : 10 MG  , FREQUENCY TIME : 1 DAY
     Dates: end: 20220727
  7. KARDEGIC [Concomitant]
     Active Substance: ASPIRIN DL-LYSINE
     Indication: Prophylaxis
     Dosage: UNIT DOSE : 160 MG  , FREQUENCY TIME : 1 DAY
     Dates: end: 20220727

REACTIONS (3)
  - Lactic acidosis [Recovering/Resolving]
  - Acute kidney injury [Recovering/Resolving]
  - Drug interaction [Unknown]

NARRATIVE: CASE EVENT DATE: 20220726
